FAERS Safety Report 4585591-2 (Version None)
Quarter: 2005Q1

REPORT INFORMATION
  Report Type: 
  Country: None (occurrence: None)
  Receive Date: 20050217
  Receipt Date: 20050211
  Transmission Date: 20050727
  Serious: Yes (Hospitalization)
  Sender: FDA-Public Use
  Company Number: CM-MERCK-0502USA01544

PATIENT
  Age: 56 Year
  Sex: Male

DRUGS (1)
  1. STROMECTOL [Suspect]
     Route: 048

REACTIONS (6)
  - ARTHRALGIA [None]
  - BACK PAIN [None]
  - CONJUNCTIVAL HAEMORRHAGE [None]
  - HEADACHE [None]
  - URINARY INCONTINENCE [None]
  - VOMITING [None]
